FAERS Safety Report 6960712-2 (Version None)
Quarter: 2010Q3

REPORT INFORMATION
  Report Type: 
  Country: None (occurrence: None)
  Receive Date: 20100901
  Receipt Date: 20100827
  Transmission Date: 20110219
  Serious: Yes (Death)
  Sender: FDA-Public Use
  Company Number: HU-ROCHE-632075

PATIENT
  Sex: Male
  Weight: 65 kg

DRUGS (6)
  1. BEVACIZUMAB [Suspect]
     Indication: NON-SMALL CELL LUNG CANCER
     Dosage: DATE OF LAST DOSE PRIOR TO SAE: 03 APRIL 2009.
     Route: 042
     Dates: start: 20090312
  2. GEMCITABINE [Suspect]
     Indication: NON-SMALL CELL LUNG CANCER
     Dosage: ON DAY 1 AND 8. DATE OF LAST DOSE PRIOR TO SAE: 14 APRIL 2009.
     Route: 042
     Dates: start: 20090312
  3. CARBOPLATIN [Suspect]
     Indication: NON-SMALL CELL LUNG CANCER
     Dosage: DATE OF LAST DOSE PRIOR TO SAE: 03 APRIL 2009.
     Route: 042
     Dates: start: 20090312
  4. FENTANYL CITRATE [Concomitant]
     Dates: start: 20090313
  5. DICLOFENAC [Concomitant]
     Dates: start: 20090319
  6. MEGESTROL [Concomitant]
     Dates: start: 20090319

REACTIONS (1)
  - GASTRIC ULCER HAEMORRHAGE [None]
